FAERS Safety Report 8083277-3 (Version None)
Quarter: 2012Q1

REPORT INFORMATION
  Report Type: 
  Country: None (occurrence: None)
  Receive Date: 20120127
  Receipt Date: 20110302
  Transmission Date: 20120608
  Serious: No
  Sender: FDA-Public Use
  Company Number: US-ABBOTT-11P-163-0709439-00

PATIENT
  Sex: Male

DRUGS (2)
  1. HUMIRA [Suspect]
     Indication: CROHN'S DISEASE
     Dosage: VERIFIED DOSAGE WITH NURSE, WAS WRITTEN AS SUCH ON MD PRESCRIPTION.
     Route: 058
  2. METHOTREXATE [Concomitant]
     Indication: CROHN'S DISEASE

REACTIONS (2)
  - EXCORIATION [None]
  - LACERATION [None]
